FAERS Safety Report 5892054-0 (Version None)
Quarter: 2008Q3

REPORT INFORMATION
  Report Type: 
  Country: None (occurrence: None)
  Receive Date: 20080922
  Receipt Date: 20080908
  Transmission Date: 20090109
  Serious: Yes (Hospitalization)
  Sender: FDA-Public Use
  Company Number: US-B.I. PHARMACEUTICALS,INC./RIDGEFIELD-2008-BP-13817BP

PATIENT
  Sex: Female

DRUGS (2)
  1. CATAPRES-TTS-1 [Suspect]
     Indication: HYPERTENSION
     Dosage: .3MG
     Route: 062
     Dates: start: 20030101
  2. ALL OTHER THERAPEUTIC PRODUCTS [Suspect]
     Indication: HYPERTENSION
     Dates: end: 20080301

REACTIONS (2)
  - HYPOAESTHESIA [None]
  - URTICARIA [None]
